FAERS Safety Report 7081194-9 (Version None)
Quarter: 2010Q4

REPORT INFORMATION
  Report Type: 
  Country: None (occurrence: None)
  Receive Date: 20101103
  Receipt Date: 20101027
  Transmission Date: 20110411
  Serious: Yes (Hospitalization, Other)
  Sender: FDA-Public Use
  Company Number: GB-ROXANE LABORATORIES, INC.-2010-RO-01424RO

PATIENT
  Age: 9 Month

DRUGS (1)
  1. MERCAPTOPURINE [Suspect]

REACTIONS (2)
  - DRUG NAME CONFUSION [None]
  - PANCYTOPENIA [None]
